FAERS Safety Report 24285401 (Version 1)
Quarter: 2024Q3

REPORT INFORMATION
  Report Type: Spontaneous
  Country: PT (occurrence: PT)
  Receive Date: 20240905
  Receipt Date: 20240905
  Transmission Date: 20241016
  Serious: Yes (Death, Life-Threatening, Other)
  Sender: SANOFI AVENTIS
  Company Number: None

PATIENT
  Age: 90 Year
  Sex: Male

DRUGS (7)
  1. ENOXAPARIN SODIUM [Suspect]
     Active Substance: ENOXAPARIN SODIUM
     Indication: Atrial fibrillation
     Dosage: 60 MG, BID (60 MG 12/12H)
     Route: 058
     Dates: start: 20240729, end: 20240802
  2. OMEPRAZOLE [Concomitant]
     Active Substance: OMEPRAZOLE
     Dosage: UNK (ID)
  3. ELIQUIS [Concomitant]
     Active Substance: APIXABAN
     Dosage: 1.25 MG, QD (ACCORDING TO CLINICAL NOTES, THE PATIENT TOOK ONLY 1.25 MG AT NIGHT FOR HEMORRHAGE OF V
  4. ACETAMINOPHEN [Concomitant]
     Active Substance: ACETAMINOPHEN
     Dosage: UNK (SOS)
  5. AZITHROMYCIN DIHYDRATE [Concomitant]
     Active Substance: AZITHROMYCIN DIHYDRATE
     Dosage: UNK (5 DAYS OF AZITHROMYCIN (MEDICATION ADMINISTERED WHEN HOSPITALIZED))
  6. FENTANYL [Concomitant]
     Active Substance: FENTANYL\FENTANYL CITRATE
     Dosage: UNK (TRANSDERMAL FENTANYL 12.5 MCG/H 72/72 H)
     Route: 062
  7. CEFTRIAXONE [Concomitant]
     Active Substance: CEFTRIAXONE\CEFTRIAXONE SODIUM
     Dosage: UNK (5 DAYS OF CEFTRIAXONE (MEDICATION ADMINISTERED WHEN HOSPITALIZED))

REACTIONS (1)
  - Retroperitoneal haemorrhage [Fatal]

NARRATIVE: CASE EVENT DATE: 20240802
